FAERS Safety Report 9245580 (Version 2)
Quarter: 2013Q2

REPORT INFORMATION
  Report Type: Spontaneous
  Country: JP (occurrence: JP)
  Receive Date: 20130422
  Receipt Date: 20130429
  Transmission Date: 20140414
  Serious: Yes (Other)
  Sender: FDA-Public Use
  Company Number: JP-PFIZER INC-2013075210

PATIENT
  Sex: Female

DRUGS (4)
  1. JZOLOFT [Suspect]
     Indication: BIPOLAR DISORDER
     Dosage: 100 MG, DAILY
     Route: 064
  2. MYSLEE [Suspect]
     Indication: BIPOLAR DISORDER
     Dosage: 10 MG, DAILY
     Route: 064
  3. DORAL [Concomitant]
     Dosage: UNK
     Route: 064
  4. FERRO-GRADUMET [Concomitant]
     Dosage: UNK
     Route: 064

REACTIONS (3)
  - Maternal exposure during pregnancy [Recovered/Resolved]
  - Umbilical cord abnormality [Recovered/Resolved]
  - Premature baby [Recovered/Resolved]
